FAERS Safety Report 17431798 (Version 3)
Quarter: 2020Q1

REPORT INFORMATION
  Report Type: Spontaneous
  Country: JP (occurrence: JP)
  Receive Date: 20200218
  Receipt Date: 20200306
  Transmission Date: 20200409
  Serious: Yes (Hospitalization)
  Sender: FDA-Public Use
  Company Number: JP-CELGENEUS-JPN-20200204223

PATIENT
  Age: 73 Year
  Sex: Male
  Weight: 65.5 kg

DRUGS (25)
  1. KETAS [Concomitant]
     Active Substance: IBUDILAST
     Indication: CEREBRAL INFARCTION
     Dosage: 30 MILLIGRAM
     Route: 048
     Dates: start: 1998
  2. ECARD [Concomitant]
     Active Substance: CANDESARTAN CILEXETIL\HYDROCHLOROTHIAZIDE
     Indication: HYPERTENSION
     Dosage: 8/6.25 MG
     Route: 048
     Dates: start: 20190117, end: 20200206
  3. ORAL FLUIDS [Concomitant]
     Indication: PROPHYLAXIS
     Dosage: 7000 MILLILITER
     Route: 048
     Dates: start: 20181205, end: 20181211
  4. VENETOCLAX. [Concomitant]
     Active Substance: VENETOCLAX
     Indication: ACUTE MYELOID LEUKAEMIA
     Route: 065
  5. KERATINAMIN [Concomitant]
     Active Substance: UREA
     Indication: DRY SKIN PROPHYLAXIS
     Dosage: .5 GRAM
     Route: 061
     Dates: start: 20190317
  6. EPRAZINONE [Concomitant]
     Active Substance: EPRAZINONE
     Indication: RHINITIS
     Dosage: 60 MILLIGRAM
     Route: 048
     Dates: start: 20191213
  7. ZOLPIDEM [Concomitant]
     Active Substance: ZOLPIDEM TARTRATE
     Indication: INSOMNIA
     Dosage: 5 MILLIGRAM
     Route: 048
     Dates: start: 20190507
  8. NORMAL SALINE [Concomitant]
     Active Substance: SODIUM CHLORIDE
     Indication: PROPHYLAXIS
     Dosage: 3000 MILLILITER
     Route: 041
     Dates: start: 20181205, end: 20181207
  9. LOTRIGA [Concomitant]
     Active Substance: OMEGA-3-ACID ETHYL ESTERS
     Indication: CEREBRAL INFARCTION
     Dosage: 2 GRAM
     Route: 048
     Dates: start: 1998
  10. VIDAZA [Suspect]
     Active Substance: AZACITIDINE
     Indication: ACUTE MYELOID LEUKAEMIA
     Dosage: 75 MILLIGRAM/SQ. METER
     Route: 058
     Dates: start: 20181205
  11. FEBUXOSTAT. [Concomitant]
     Active Substance: FEBUXOSTAT
     Indication: PROPHYLAXIS
     Dosage: 60 MILLIGRAM
     Route: 048
     Dates: start: 20181205, end: 20181209
  12. AMLODIPINE [Concomitant]
     Active Substance: AMLODIPINE BESYLATE
     Indication: HYPERTENSION
     Dosage: 5 MILLIGRAM
     Route: 048
     Dates: start: 20190117, end: 20200206
  13. LIVOSTIN [Concomitant]
     Active Substance: LEVOCABASTINE HYDROCHLORIDE
     Indication: EYE PRURITUS
     Route: 031
     Dates: start: 20190317
  14. BROTIZOLAM [Concomitant]
     Active Substance: BROTIZOLAM
     Indication: INSOMNIA
     Dosage: .25 MILLIGRAM
     Route: 048
     Dates: start: 20190413
  15. NEOSTELIN GREEN [Concomitant]
     Active Substance: BENZETHONIUM CHLORIDE
     Indication: INFECTION PROPHYLAXIS
     Dosage: 1 MILLILITER
     Route: 061
     Dates: start: 20181219
  16. MAGNESIUM OXIDE. [Concomitant]
     Active Substance: MAGNESIUM OXIDE
     Indication: CONSTIPATION PROPHYLAXIS
     Dosage: 990 MILLIGRAM
     Route: 048
     Dates: start: 20181216
  17. SERMION [Concomitant]
     Active Substance: NICERGOLINE
     Indication: CEREBRAL INFARCTION
     Dosage: 15 MILLIGRAM
     Route: 048
     Dates: start: 20190117
  18. XYLOCAINE [Concomitant]
     Active Substance: LIDOCAINE HYDROCHLORIDE
     Indication: BIOPSY BONE MARROW
     Route: 058
     Dates: start: 20181122
  19. PL [Concomitant]
     Active Substance: ACETAMINOPHEN\CAFFEINE\PROMETHAZINE\SALICYLAMIDE
     Indication: RHINITIS
     Dosage: 3 GRAM
     Route: 048
     Dates: start: 20191213
  20. PIRENOXINE [Concomitant]
     Active Substance: PIRENOXINE
     Indication: CATARACT
     Route: 031
     Dates: start: 2017
  21. PANTETHINE [Concomitant]
     Active Substance: PANTETHINE
     Indication: CONSTIPATION PROPHYLAXIS
     Dosage: 300 MILLIGRAM
     Route: 048
     Dates: start: 20181216
  22. HEPARINOID [Concomitant]
     Active Substance: CHONDROITIN SULFATE (BOVINE)
     Indication: DRY SKIN PROPHYLAXIS
     Dosage: .5 GRAM
     Route: 061
     Dates: start: 20181218
  23. SODIUM PICOSULFATE [Concomitant]
     Active Substance: SODIUM PICOSULFATE
     Indication: CONSTIPATION
     Route: 048
     Dates: start: 20190107
  24. SODIUM RABEPRAZOLE [Concomitant]
     Active Substance: RABEPRAZOLE SODIUM
     Indication: PROPHYLAXIS AGAINST GASTROINTESTINAL ULCER
     Dosage: 20 MILLIGRAM
     Route: 048
     Dates: start: 20191029
  25. FEXOFENADINE [Concomitant]
     Active Substance: FEXOFENADINE HYDROCHLORIDE
     Indication: RHINITIS
     Dosage: 120 MILLIGRAM
     Route: 048
     Dates: start: 20200110

REACTIONS (1)
  - Cellulitis [Recovered/Resolved]

NARRATIVE: CASE EVENT DATE: 20200204
